FAERS Safety Report 5119509-0 (Version None)
Quarter: 2006Q4

REPORT INFORMATION
  Report Type: 
  Country: None (occurrence: None)
  Receive Date: 20061003
  Receipt Date: 20060919
  Transmission Date: 20070319
  Serious: Yes (Death, Other)
  Sender: FDA-Public Use
  Company Number: JP-BRISTOL-MYERS SQUIBB COMPANY-13521273

PATIENT
  Age: 51 Year
  Sex: Male

DRUGS (15)
  1. ENDOXAN [Suspect]
     Indication: MULTIPLE MYELOMA
     Dates: start: 20050301, end: 20050101
  2. ENDOXAN [Suspect]
     Indication: CHEST WALL MASS
     Dates: start: 20050301, end: 20050101
  3. ETOPOSIDE [Suspect]
     Indication: MULTIPLE MYELOMA
     Dates: start: 20050101, end: 20050101
  4. THALIDOMIDE [Suspect]
     Indication: MULTIPLE MYELOMA
     Route: 048
     Dates: start: 20041101, end: 20050101
  5. DEXAMETHASONE TAB [Suspect]
     Indication: MULTIPLE MYELOMA
     Route: 048
     Dates: start: 20041101, end: 20050101
  6. ADRIAMYCIN PFS [Suspect]
     Indication: MULTIPLE MYELOMA
     Dates: start: 20050301, end: 20050101
  7. ONCOVIN [Suspect]
     Indication: MULTIPLE MYELOMA
     Dates: start: 20050301, end: 20050101
  8. CYMERIN [Suspect]
     Indication: CHEST WALL MASS
     Dates: start: 20050501, end: 20050101
  9. PREDONINE [Concomitant]
     Dates: start: 20050301, end: 20050101
  10. ORGARAN [Concomitant]
     Dates: start: 20050501, end: 20050101
  11. HEPARIN SODIUM [Concomitant]
     Dates: start: 20050101, end: 20050101
  12. WARFARIN SODIUM [Concomitant]
     Route: 048
     Dates: start: 20050101, end: 20050501
  13. DIRITHROMYCIN [Concomitant]
     Dates: end: 20050101
  14. PREDNISONE [Concomitant]
  15. MELPHALAN [Concomitant]

REACTIONS (3)
  - BONE MARROW FAILURE [None]
  - PLATELET COUNT DECREASED [None]
  - THROMBOPHLEBITIS [None]
